FAERS Safety Report 12136918 (Version 1)
Quarter: 2016Q1

REPORT INFORMATION
  Report Type: Spontaneous
  Country: US (occurrence: None)
  Receive Date: 20160301
  Receipt Date: 20160301
  Transmission Date: 20160526
  Serious: Yes (Hospitalization)
  Sender: FDA-Public Use
  Company Number: None

PATIENT
  Age: 87 Year
  Sex: Male
  Weight: 68.3 kg

DRUGS (1)
  1. APIXABAN [Suspect]
     Active Substance: APIXABAN
     Indication: ATRIAL FIBRILLATION
     Route: 048
     Dates: start: 20141125, end: 20141212

REACTIONS (3)
  - Haemorrhoidal haemorrhage [None]
  - Rectal haemorrhage [None]
  - Gastrointestinal disorder [None]

NARRATIVE: CASE EVENT DATE: 20141213
